FAERS Safety Report 25406354 (Version 1)
Quarter: 2025Q2

REPORT INFORMATION
  Report Type: Spontaneous
  Country: AU (occurrence: AU)
  Receive Date: 20250606
  Receipt Date: 20250606
  Transmission Date: 20250717
  Serious: Yes (Other)
  Sender: HELSINN HEALTHCARE
  Company Number: AU-HBP-2025AU031854

PATIENT
  Age: 69 Year
  Sex: Female

DRUGS (8)
  1. AKYNZEO (FOSNETUPITANT\PALONOSETRON HYDROCHLORIDE) [Suspect]
     Active Substance: FOSNETUPITANT\PALONOSETRON HYDROCHLORIDE
     Indication: Premedication
     Route: 041
     Dates: start: 20241205, end: 20241205
  2. DEXAMETHASONE [Suspect]
     Active Substance: DEXAMETHASONE
     Indication: Premedication
     Route: 042
     Dates: start: 20241205, end: 20241205
  3. FAMOTIDINE [Suspect]
     Active Substance: FAMOTIDINE
     Indication: Premedication
     Route: 048
     Dates: start: 20241205, end: 20241205
  4. LORATADINE [Suspect]
     Active Substance: LORATADINE
     Indication: Premedication
     Route: 048
     Dates: start: 20241205, end: 20241205
  5. BEVACIZUMAB [Suspect]
     Active Substance: BEVACIZUMAB
     Indication: Ovarian cancer
     Route: 042
     Dates: start: 20241205, end: 20241205
  6. SODIUM CHLORIDE [Suspect]
     Active Substance: SODIUM CHLORIDE
     Indication: Medication dilution
     Route: 042
     Dates: start: 20241205, end: 20241205
  7. PACLITAXEL [Concomitant]
     Active Substance: PACLITAXEL
     Indication: Ovarian cancer
     Route: 065
     Dates: start: 20241206, end: 20241206
  8. CARBOPLATIN [Concomitant]
     Active Substance: CARBOPLATIN
     Indication: Ovarian cancer
     Route: 065
     Dates: start: 20241206, end: 20241206

REACTIONS (5)
  - Cold sweat [Recovering/Resolving]
  - Cough [Recovering/Resolving]
  - Dyspnoea [Recovering/Resolving]
  - Back pain [Recovering/Resolving]
  - Flushing [Recovering/Resolving]

NARRATIVE: CASE EVENT DATE: 20241205
